FAERS Safety Report 8054800-X (Version None)
Quarter: 2012Q1

REPORT INFORMATION
  Report Type: 
  Country: None (occurrence: None)
  Receive Date: 20120119
  Receipt Date: 20120109
  Transmission Date: 20120608
  Serious: Yes (Hospitalization)
  Sender: FDA-Public Use
  Company Number: US-BAYER-2010-001439

PATIENT
  Age: 47 Year
  Sex: Female
  Weight: 80.726 kg

DRUGS (4)
  1. PAXIL CR [Concomitant]
     Indication: PREMENSTRUAL SYNDROME
     Dosage: DAILY DOSE 12.5 MG
     Route: 048
     Dates: start: 20070301, end: 20100501
  2. NEXIUM [Concomitant]
     Dosage: UNK
     Route: 048
     Dates: start: 20090805
  3. YAZ [Suspect]
     Indication: ACNE
     Dosage: UNK
     Dates: start: 20070301, end: 20090901
  4. YAZ [Suspect]
     Indication: PREMENSTRUAL SYNDROME

REACTIONS (2)
  - CHOLECYSTITIS ACUTE [None]
  - CHOLELITHIASIS [None]
